FAERS Safety Report 7715684-X (Version None)
Quarter: 2011Q3

REPORT INFORMATION
  Report Type: 
  Country: None (occurrence: None)
  Receive Date: 20110823
  Receipt Date: 20110808
  Transmission Date: 20111222
  Serious: Yes (Other)
  Sender: FDA-Public Use
  Company Number: 1000022976

PATIENT
  Sex: Female

DRUGS (11)
  1. CYMBALTA [Suspect]
     Dosage: 30 MG, ORAL
     Route: 048
     Dates: start: 20100201
  2. ESCITALOPRAM [Suspect]
     Dosage: 5 MG
  3. ESCITALOPRAM [Suspect]
     Dosage: 10 MG
  4. ESCITALOPRAM [Suspect]
     Dosage: 10 MG
     Dates: end: 20110201
  5. ESCITALOPRAM [Suspect]
     Dosage: (5 MG)
  6. CYMBALTA [Suspect]
     Dosage: 30 MG, ORAL
     Route: 048
  7. CYMBALTA [Suspect]
     Dosage: 30 MG, ORAL
     Route: 048
     Dates: start: 20110601, end: 20110701
  8. ESCITALOPRAM [Suspect]
     Dosage: SEE IMAGE
  9. CYMBALTA [Suspect]
     Dosage: 30 MG, ORAL
     Route: 048
  10. ESCITALOPRAM [Suspect]
     Dosage: 5 MG
  11. CYMBALTA [Suspect]
     Dosage: 60 MG, ORAL
     Route: 048

REACTIONS (14)
  - SUICIDAL IDEATION [None]
  - VAGINAL ABSCESS [None]
  - CONSTIPATION [None]
  - FAECAL VOLUME DECREASED [None]
  - DRUG WITHDRAWAL SYNDROME [None]
  - GASTROINTESTINAL DISORDER [None]
  - DRUG INEFFECTIVE [None]
  - DECREASED APPETITE [None]
  - URINE OUTPUT DECREASED [None]
  - DEPRESSION [None]
  - WRONG TECHNIQUE IN DRUG USAGE PROCESS [None]
  - ANXIETY [None]
  - GASTROINTESTINAL OEDEMA [None]
  - MICTURITION DISORDER [None]
